FAERS Safety Report 5792376-8 (Version None)
Quarter: 2008Q2

REPORT INFORMATION
  Report Type: 
  Country: None (occurrence: None)
  Receive Date: 20080623
  Receipt Date: 20080610
  Transmission Date: 20081010
  Serious: Yes (Death, Hospitalization)
  Sender: FDA-Public Use
  Company Number: GXKR2008ES05322

PATIENT
  Age: 65 Year
  Sex: Male

DRUGS (7)
  1. ACENOCOUMAROL (NGX) (ACENOCOUMAROL) UNKNOWN [Suspect]
     Indication: ANTICOAGULANT THERAPY
  2. PREDNISONE [Suspect]
     Indication: IMMUNOSUPPRESSANT DRUG THERAPY
  3. MYCOPHENOLATE MOFETIL [Suspect]
     Indication: IMMUNOSUPPRESSANT DRUG THERAPY
  4. CYCLOSPORINE [Suspect]
     Indication: IMMUNOSUPPRESSANT DRUG THERAPY
  5. METHYLPREDNISOLONE [Suspect]
     Indication: TRANSPLANT REJECTION
  6. CALCIUM CARBONATE (NCH) (CALCIUM CARBONATE) UNKNOWN [Suspect]
     Indication: HYPOCALCAEMIA
     Dosage: 12 G, QD
  7. CALCITRIOL [Suspect]
     Indication: HYPOCALCAEMIA
     Dosage: 1 UG, QD, ORAL
     Route: 048

REACTIONS (17)
  - ANAEMIA [None]
  - BLOOD ALBUMIN DECREASED [None]
  - BLOOD CULTURE POSITIVE [None]
  - CALCIPHYLAXIS [None]
  - CRYPTOCOCCOSIS [None]
  - ECCHYMOSIS [None]
  - FAT NECROSIS [None]
  - HAEMODYNAMIC INSTABILITY [None]
  - HYPOCALCAEMIA [None]
  - INFECTION [None]
  - PYREXIA [None]
  - SEPTIC SHOCK [None]
  - SKIN LESION [None]
  - SKIN NECROSIS [None]
  - THROMBOSIS [None]
  - VASCULAR CALCIFICATION [None]
  - WHITE BLOOD CELL COUNT DECREASED [None]
